FAERS Safety Report 5149438-8 (Version None)
Quarter: 2006Q4

REPORT INFORMATION
  Report Type: 
  Country: None (occurrence: None)
  Receive Date: 20061113
  Receipt Date: 20060112
  Transmission Date: 20070319
  Serious: No
  Sender: FDA-Public Use
  Company Number: 432574

PATIENT
  Age: 56 Year
  Sex: Female

DRUGS (1)
  1. COREG [Suspect]
     Indication: CARDIOMYOPATHY
     Dosage: 50MG PER DAY
     Route: 065
     Dates: start: 20021001

REACTIONS (2)
  - DYSPNOEA [None]
  - FATIGUE [None]
